FAERS Safety Report 9563943 (Version 2)
Quarter: 2013Q4

REPORT INFORMATION
  Report Type: Report from Study
  Country: IL (occurrence: IL)
  Receive Date: 20130928
  Receipt Date: 20131120
  Transmission Date: 20140711
  Serious: Yes (Hospitalization, Other)
  Sender: FDA-Public Use
  Company Number: IL-ROCHE-1280521

PATIENT
  Age: 73 Year
  Sex: Female

DRUGS (12)
  1. PEG-INTERFERON ALFA 2A [Suspect]
     Indication: HEPATITIS C
     Route: 058
     Dates: start: 20130804
  2. RIBAVIRIN [Suspect]
     Indication: HEPATITIS C
     Route: 048
     Dates: start: 20130804
  3. TELAPREVIR [Suspect]
     Indication: HEPATITIS C
     Route: 048
     Dates: start: 20130804
  4. CLOPIDOGREL [Concomitant]
     Route: 065
  5. SIMVACOR [Concomitant]
     Indication: HYPERLIPIDAEMIA
     Route: 065
  6. PANKREOFLAT [Concomitant]
     Indication: GASTROINTESTINAL DISORDER
     Route: 065
  7. LOSEC (ISRAEL) [Concomitant]
     Indication: DIAPHRAGMATIC HERNIA
     Route: 065
  8. CARDILOC [Concomitant]
     Indication: HYPERTENSION
     Route: 065
  9. LYTEERS [Concomitant]
     Indication: DRY EYE
     Route: 065
  10. VITAMIN E [Concomitant]
     Indication: VITAMIN E DEFICIENCY
     Route: 065
  11. AMLOW [Concomitant]
     Route: 065
  12. SPASMEX (TROSPIUM CHLORIDE) [Concomitant]
     Indication: HYPERTONIC BLADDER
     Route: 065

REACTIONS (7)
  - Anaemia [Recovered/Resolved]
  - Syncope [Unknown]
  - Fatigue [Not Recovered/Not Resolved]
  - Hepatic function abnormal [Not Recovered/Not Resolved]
  - Illusion [Unknown]
  - Asthenia [Unknown]
  - Drug ineffective [Unknown]
